FAERS Safety Report 7208107-0 (Version None)
Quarter: 2010Q4

REPORT INFORMATION
  Report Type: 
  Country: None (occurrence: None)
  Receive Date: 20101230
  Receipt Date: 20101230
  Transmission Date: 20110411
  Serious: No
  Sender: FDA-Public Use
  Company Number: None

PATIENT
  Sex: Female
  Weight: 72.5755 kg

DRUGS (1)
  1. DARVOCET [Suspect]
     Indication: ARTHRITIS
     Dosage: 100-650 4X DAILY ORAL
     Route: 048
     Dates: start: 20020101, end: 20100101

REACTIONS (1)
  - CARDIAC DISORDER [None]
